FAERS Safety Report 12660022 (Version 2)
Quarter: 2016Q3

REPORT INFORMATION
  Report Type: Spontaneous
  Country: NL (occurrence: NL)
  Receive Date: 20160817
  Receipt Date: 20160907
  Transmission Date: 20161109
  Serious: Yes (Hospitalization, Other)
  Sender: FDA-Public Use
  Company Number: NL-PFIZER INC-2016387750

PATIENT
  Age: 52 Year
  Sex: Male
  Weight: 99 kg

DRUGS (9)
  1. LANTUS XR [Concomitant]
     Active Substance: INSULIN GLARGINE
     Dosage: UNK
     Route: 058
  2. NOVORAPID [Concomitant]
     Active Substance: INSULIN ASPART
     Dosage: BY AGREEMENT HIS EXTRA INJECTIONS SUBCUTANEOUSLY
     Route: 058
  3. PHENETICILLIN [Concomitant]
     Active Substance: PHENETICILLIN
     Dosage: 500 MG, 1X/DAY
     Route: 048
  4. KURKUMA [Concomitant]
     Dosage: UNK
  5. GLUCAGON NOVO NORDISK /00157803/ [Concomitant]
     Route: 058
  6. BURINEX K [Concomitant]
     Dosage: 1 MG, UNK
     Route: 048
  7. BROXIL [Concomitant]
     Active Substance: PHENETHICILLIN POTASSIUM
     Dosage: 250 MG
     Route: 048
     Dates: start: 20160216
  8. GEMCITABINE HYDROCHLORIDE. [Suspect]
     Active Substance: GEMCITABINE HYDROCHLORIDE
     Indication: PANCREATIC CARCINOMA
     Dosage: 3 TIMES A MONTH 1 UNIT, ON DAY 1, 8 AND 15
     Route: 042
     Dates: start: 20160407, end: 20160616
  9. CREON FORTE [Concomitant]
     Dosage: 300 MG, 3X/DAY
     Route: 048

REACTIONS (6)
  - Acute kidney injury [Recovering/Resolving]
  - Thrombotic microangiopathy [Recovering/Resolving]
  - Dyspnoea [Recovering/Resolving]
  - Malignant hypertension [Recovering/Resolving]
  - Oedema [Recovering/Resolving]
  - Haemolysis [Recovering/Resolving]

NARRATIVE: CASE EVENT DATE: 20160718
